FAERS Safety Report 24881534 (Version 1)
Quarter: 2025Q1

REPORT INFORMATION
  Report Type: Report from Study
  Country: US (occurrence: US)
  Receive Date: 20250124
  Receipt Date: 20250124
  Transmission Date: 20250408
  Serious: Yes (Other)
  Sender: EMD SERONO INC
  Company Number: US-Merck Healthcare KGaA-2025002784

PATIENT
  Age: 76 Year
  Sex: Female

DRUGS (1)
  1. REBIF [Suspect]
     Active Substance: INTERFERON BETA-1A
     Indication: Multiple sclerosis
     Dates: start: 20100324

REACTIONS (8)
  - Chronic kidney disease [Unknown]
  - Dyskinesia [Unknown]
  - Grip strength decreased [Unknown]
  - Back pain [Unknown]
  - Muscle spasms [Unknown]
  - Gait disturbance [Unknown]
  - Back disorder [Unknown]
  - Intentional product use issue [Unknown]

NARRATIVE: CASE EVENT DATE: 20250113
